FAERS Safety Report 15182826 (Version 1)
Quarter: 2018Q3

REPORT INFORMATION
  Report Type: Spontaneous
  Country: GE (occurrence: GE)
  Receive Date: 20180723
  Receipt Date: 20180723
  Transmission Date: 20181010
  Serious: Yes (Hospitalization, Other)
  Sender: FDA-Public Use
  Company Number: GE-PFIZER INC-2018292528

PATIENT
  Age: 46 Year
  Sex: Male
  Weight: 86 kg

DRUGS (9)
  1. LPV/R [Concomitant]
     Active Substance: LOPINAVIR\RITONAVIR
     Dosage: UNK
     Dates: start: 2008
  2. CYCLOSERINE. [Suspect]
     Active Substance: CYCLOSERINE
     Dosage: UNK
     Dates: start: 20180318, end: 20180322
  3. LINEZOLID. [Suspect]
     Active Substance: LINEZOLID
     Indication: PULMONARY TUBERCULOSIS
     Dosage: 600 MG, DAILY
     Dates: start: 20170313, end: 20180213
  4. LINEZOLID. [Suspect]
     Active Substance: LINEZOLID
     Dosage: UNK
     Dates: start: 20180318, end: 20180322
  5. CLOFAZIMINE [Suspect]
     Active Substance: CLOFAZIMINE
     Dosage: UNK
     Dates: start: 20180318, end: 20180322
  6. CYCLOSERINE. [Suspect]
     Active Substance: CYCLOSERINE
     Indication: PULMONARY TUBERCULOSIS
     Dosage: 750 MG, DAILY
     Dates: start: 20170313, end: 20180213
  7. CLOFAZIMINE [Suspect]
     Active Substance: CLOFAZIMINE
     Indication: PULMONARY TUBERCULOSIS
     Dosage: 100 MG, DAILY
     Dates: start: 20170313, end: 20180213
  8. TDF/3TC [Concomitant]
     Dosage: UNK
     Dates: start: 2008
  9. DELAMANID [Suspect]
     Active Substance: DELAMANID
     Indication: PULMONARY TUBERCULOSIS
     Dosage: UNK
     Dates: start: 201703, end: 20170827

REACTIONS (3)
  - Hepatotoxicity [Recovered/Resolved with Sequelae]
  - Hepatic cirrhosis [Unknown]
  - Condition aggravated [Unknown]

NARRATIVE: CASE EVENT DATE: 20180206
